FAERS Safety Report 9237014 (Version 2)
Quarter: 2013Q2

REPORT INFORMATION
  Report Type: Spontaneous
  Country: AU (occurrence: AU)
  Receive Date: 20130417
  Receipt Date: 20130607
  Transmission Date: 20140414
  Serious: Yes (Disabling)
  Sender: FDA-Public Use
  Company Number: AU-009507513-1304AUS006736

PATIENT
  Age: 56 Year
  Sex: Male
  Weight: 71 kg

DRUGS (2)
  1. VICTRELIS 200 MG [Suspect]
     Indication: HEPATITIS C
     Dosage: 4 TABLETS THREE TIMES A DAY, 2400 MG DAILY
     Route: 048
     Dates: start: 20120818, end: 20130308
  2. VICTRELIS 200 MG [Suspect]
     Indication: LIVER DISORDER

REACTIONS (1)
  - Retinal haemorrhage [Recovering/Resolving]
